FAERS Safety Report 17462344 (Version 1)
Quarter: 2020Q1

REPORT INFORMATION
  Report Type: Spontaneous
  Country: US (occurrence: US)
  Receive Date: 20200226
  Receipt Date: 20200226
  Transmission Date: 20200409
  Serious: No
  Sender: FDA-Public Use
  Company Number: US-IPSEN BIOPHARMACEUTICALS, INC.-2020-03674

PATIENT
  Age: 49 Year
  Sex: Female

DRUGS (9)
  1. DYSPORT [Suspect]
     Active Substance: ABOBOTULINUMTOXINA
     Indication: SKIN WRINKLING
     Dosage: 300 INTERNATIONAL UNITS
     Route: 030
     Dates: start: 20200106, end: 20200106
  2. RESTYLANE LYFT [Concomitant]
     Active Substance: HYALURONIC ACID
     Indication: SKIN COSMETIC PROCEDURE
     Dates: start: 20200106, end: 20200106
  3. RESTYLANE DEFYNE [Concomitant]
     Active Substance: HYALURONIC ACID\LIDOCAINE
     Indication: SKIN WRINKLING
     Dates: start: 20200106, end: 20200106
  4. DYSPORT [Suspect]
     Active Substance: ABOBOTULINUMTOXINA
     Indication: SKIN WRINKLING
  5. RESTYLANE LYFT [Concomitant]
     Active Substance: HYALURONIC ACID
     Dates: start: 20200213, end: 20200213
  6. DYSPORT [Suspect]
     Active Substance: ABOBOTULINUMTOXINA
     Indication: OFF LABEL USE
  7. DYSPORT [Suspect]
     Active Substance: ABOBOTULINUMTOXINA
     Indication: SKIN WRINKLING
  8. DYSPORT [Suspect]
     Active Substance: ABOBOTULINUMTOXINA
     Indication: SKIN WRINKLING
  9. RESTYLANE L [Suspect]
     Active Substance: HYALURONIC ACID\LIDOCAINE
     Indication: SKIN WRINKLING
     Dates: start: 20200213, end: 20200213

REACTIONS (4)
  - Lip swelling [Recovered/Resolved]
  - Lip erythema [Recovered/Resolved]
  - Off label use [Unknown]
  - Lip pain [Recovered/Resolved]

NARRATIVE: CASE EVENT DATE: 20200106
